FAERS Safety Report 20919572 (Version 1)
Quarter: 2022Q2

REPORT INFORMATION
  Report Type: Spontaneous
  Country: US (occurrence: None)
  Receive Date: 20220603
  Receipt Date: 20220603
  Transmission Date: 20220721
  Serious: Yes (Hospitalization, Disabling, Other)
  Sender: FDA-Public Use
  Company Number: None

PATIENT
  Age: 44 Year
  Sex: Female
  Weight: 76.5 kg

DRUGS (3)
  1. LUPRON [Suspect]
     Active Substance: LEUPROLIDE ACETATE
     Indication: Endometriosis
     Dates: start: 20110429, end: 20111129
  2. ESTROGENS [Concomitant]
     Active Substance: ESTROGENS
  3. THRIVE [Concomitant]
     Active Substance: NICOTINE

REACTIONS (6)
  - Ovarian dysfunction [None]
  - Premature menopause [None]
  - Bone loss [None]
  - Blood oestrogen decreased [None]
  - Bone density decreased [None]
  - Ankle fracture [None]

NARRATIVE: CASE EVENT DATE: 20211121
